FAERS Safety Report 25734700 (Version 1)
Quarter: 2025Q3

REPORT INFORMATION
  Report Type: Report from Study
  Country: CA (occurrence: CA)
  Receive Date: 20250828
  Receipt Date: 20250828
  Transmission Date: 20251020
  Serious: Yes (Other)
  Sender: ABBVIE
  Company Number: CA-ABBVIE-6431633

PATIENT
  Sex: Female

DRUGS (2)
  1. SKYRIZI [Suspect]
     Active Substance: RISANKIZUMAB-RZAA
     Indication: Psoriasis
     Route: 058
  2. METHOTREXATE SODIUM [Suspect]
     Active Substance: METHOTREXATE SODIUM
     Indication: Product used for unknown indication
     Route: 065

REACTIONS (8)
  - Hernia [Unknown]
  - Thrombosis [Unknown]
  - Malaise [Unknown]
  - Influenza [Not Recovered/Not Resolved]
  - Food poisoning [Unknown]
  - Pain [Unknown]
  - Addison^s disease [Unknown]
  - Skin atrophy [Unknown]
